FAERS Safety Report 13777042 (Version 2)
Quarter: 2017Q3

REPORT INFORMATION
  Report Type: Report from Study
  Country: KR (occurrence: KR)
  Receive Date: 20170721
  Receipt Date: 20170822
  Transmission Date: 20171127
  Serious: Yes (Hospitalization, Other)
  Sender: FDA-Public Use
  Company Number: KR-GILEAD-2017-0284280

PATIENT
  Age: 73 Year
  Sex: Female
  Weight: 74 kg

DRUGS (11)
  1. DOXORUBIN [Concomitant]
     Active Substance: DOXORUBICIN
     Dosage: 52.5 MG, UNK
     Dates: start: 20170630
  2. VINCRISTINE [Concomitant]
     Active Substance: VINCRISTINE
     Dosage: 1 MG, UNK
     Dates: start: 20170630
  3. RITUXIMAB. [Concomitant]
     Active Substance: RITUXIMAB
     Dosage: 656.25 UNK, UNK
     Dates: start: 20170406
  4. DOXORUBIN [Concomitant]
     Active Substance: DOXORUBICIN
     Dosage: 52.5 MG, UNK
     Dates: start: 20170406
  5. SOLONDO [Concomitant]
     Active Substance: PREDNISOLONE
     Dosage: 40 MG, UNK
     Dates: start: 20170630
  6. VINCRISTINE [Concomitant]
     Active Substance: VINCRISTINE
     Dosage: 1 MG, UNK
     Dates: start: 20170406
  7. SOLONDO [Concomitant]
     Active Substance: PREDNISOLONE
     Dosage: 40 MG, UNK
     Dates: start: 20170406
  8. RITUXIMAB. [Concomitant]
     Active Substance: RITUXIMAB
     Dosage: 656.25 MG, UNK
     Dates: start: 20170630
  9. CYCLOPHOSPHAMIDE. [Concomitant]
     Active Substance: CYCLOPHOSPHAMIDE
     Dosage: 1050 MG, UNK
     Dates: start: 20170406
  10. TENOFOVIR DISOPROXIL FUMARATE. [Suspect]
     Active Substance: TENOFOVIR DISOPROXIL FUMARATE
     Indication: HEPATITIS B
     Dosage: 300 MG, QD
     Route: 048
     Dates: start: 20170406
  11. CYCLOPHOSPHAMIDE. [Concomitant]
     Active Substance: CYCLOPHOSPHAMIDE
     Dosage: 1050 MG, UNK
     Dates: start: 20170630

REACTIONS (1)
  - Anaemia [Recovered/Resolved]

NARRATIVE: CASE EVENT DATE: 20170711
